APPROVED DRUG PRODUCT: TIGECYCLINE
Active Ingredient: TIGECYCLINE
Strength: 50MG/VIAL
Dosage Form/Route: POWDER;INTRAVENOUS
Application: N205645 | Product #001 | TE Code: AP
Applicant: FRESENIUS KABI USA LLC
Approved: Dec 1, 2016 | RLD: Yes | RS: Yes | Type: RX